FAERS Safety Report 15999933 (Version 1)
Quarter: 2019Q1

REPORT INFORMATION
  Report Type: Spontaneous
  Country: US (occurrence: US)
  Receive Date: 20190223
  Receipt Date: 20190223
  Transmission Date: 20190418
  Serious: No
  Sender: FDA-Public Use
  Company Number: None

PATIENT
  Age: 66 Year
  Sex: Female

DRUGS (2)
  1. ALENDRONATE [Suspect]
     Active Substance: ALENDRONATE SODIUM
     Dosage: ?          OTHER FREQUENCY:ONCE WEEKLY;?
     Route: 048
     Dates: start: 20190114, end: 20190220
  2. SUMATRIPTAN 100MG TABLET [Concomitant]
     Dates: start: 20110422, end: 20190223

REACTIONS (2)
  - Ocular hyperaemia [None]
  - Conjunctivitis [None]

NARRATIVE: CASE EVENT DATE: 20190221
